FAERS Safety Report 7658257-X (Version None)
Quarter: 2011Q3

REPORT INFORMATION
  Report Type: 
  Country: None (occurrence: None)
  Receive Date: 20110802
  Receipt Date: 20110718
  Transmission Date: 20111222
  Serious: Yes (Disabling, Other)
  Sender: FDA-Public Use
  Company Number: 09-AUR-10073

PATIENT
  Age: 78 Year
  Sex: Male

DRUGS (4)
  1. ITRACONAZOLE [Suspect]
     Indication: PRODUCT USED FOR UNKNOWN INDICATION
     Dates: start: 20051201
  2. SIMVASTATIN [Suspect]
     Indication: PRODUCT USED FOR UNKNOWN INDICATION
     Dosage: (40 MG, 1 D)
     Dates: start: 20051101
  3. WARFARIN SODIUM [Concomitant]
  4. ZOLADEX [Concomitant]

REACTIONS (1)
  - MUSCLE DISORDER [None]
